FAERS Safety Report 24727029 (Version 1)
Quarter: 2024Q4

REPORT INFORMATION
  Report Type: Report from Study
  Country: AR (occurrence: AR)
  Receive Date: 20241212
  Receipt Date: 20241212
  Transmission Date: 20250114
  Serious: Yes (Other)
  Sender: ABBVIE
  Company Number: AR-ABBVIE-6042579

PATIENT
  Age: 71 Year
  Sex: Female

DRUGS (1)
  1. RINVOQ [Suspect]
     Active Substance: UPADACITINIB
     Indication: Psoriatic arthropathy
     Dosage: FORM STRENGTH: 15 MILLIGRAM, DOSE FORM: MODIFIED-RELEASE FILM-COATED TABLET
     Route: 048
     Dates: start: 20220305, end: 20241031

REACTIONS (10)
  - Renal failure [Unknown]
  - Weight decreased [Unknown]
  - Peripheral swelling [Unknown]
  - Blood triglycerides abnormal [Unknown]
  - Pain [Unknown]
  - Unevaluable event [Unknown]
  - Platelet count increased [Unknown]
  - Blood uric acid increased [Unknown]
  - Anaemia [Unknown]
  - Pain in extremity [Unknown]
